FAERS Safety Report 7649365-8 (Version None)
Quarter: 2011Q3

REPORT INFORMATION
  Report Type: 
  Country: None (occurrence: None)
  Receive Date: 20110721
  Receipt Date: 20110715
  Transmission Date: 20111222
  Serious: Yes (Hospitalization, Other)
  Sender: FDA-Public Use
  Company Number: 2011028871

PATIENT
  Age: 53 Year
  Sex: Female
  Weight: 83.4619 kg

DRUGS (21)
  1. HIZENTRA [Suspect]
  2. ZOFRAN [Concomitant]
  3. RESTASIS [Concomitant]
  4. TYLENOL W/ CODEINE NO. 3 [Concomitant]
  5. FLORINEF [Concomitant]
  6. HIZENTRA [Suspect]
  7. ESTRING [Concomitant]
  8. LEXAPRO [Concomitant]
  9. HIZENTRA [Suspect]
  10. LOTEMAX (LIOTEPREDNOL ETABONATE) [Concomitant]
  11. SYNTHROID [Concomitant]
  12. LIDODERM [Concomitant]
  13. HIZENTRA [Suspect]
     Indication: IMMUNODEFICIENCY COMMON VARIABLE
     Dosage: 9G 1XWEEK, 9 G (45 ML) IN 2-4 SITES OVER 1 HOUR SUBCUTANEOUS, (1 GM 5 ML VIAL; 4 SITES OVER 1 HOUR
     Route: 058
     Dates: start: 20101218
  14. HIZENTRA [Suspect]
  15. VIVELLE-DOT [Concomitant]
  16. OXYCONTIN [Concomitant]
  17. VICODIN [Concomitant]
  18. VITAMIN D [Concomitant]
  19. PROBIOTIC (LACTOBACILLUS ACIDOPHILUS) [Concomitant]
  20. LORATADINE [Concomitant]
  21. CLONAZEPAM [Concomitant]

REACTIONS (8)
  - IMPAIRED HEALING [None]
  - IMMUNOGLOBULINS INCREASED [None]
  - INTERSTITIAL LUNG DISEASE [None]
  - PAIN [None]
  - CANDIDIASIS [None]
  - DEVICE RELATED INFECTION [None]
  - MUSCULOSKELETAL CHEST PAIN [None]
  - SKIN LESION [None]
